FAERS Safety Report 10640753 (Version 3)
Quarter: 2015Q1

REPORT INFORMATION
  Report Type: Spontaneous
  Country: US (occurrence: None)
  Receive Date: 20141205
  Receipt Date: 20150112
  Transmission Date: 20150720
  Serious: Yes (Other)
  Sender: FDA-Public Use
  Company Number: US-001396

PATIENT
  Sex: Female

DRUGS (2)
  1. NORMAL SALINE [Concomitant]
     Active Substance: SODIUM CHLORIDE
  2. GATTEX [Suspect]
     Active Substance: TEDUGLUTIDE\WATER
     Indication: SHORT-BOWEL SYNDROME
     Route: 058
     Dates: start: 20141010, end: 201412

REACTIONS (10)
  - Affect lability [None]
  - Urine osmolarity increased [None]
  - Fatigue [None]
  - Feeling hot [None]
  - Depression [None]
  - Mood swings [None]
  - Initial insomnia [None]
  - No therapeutic response [None]
  - Fluid overload [None]
  - Arthralgia [None]

NARRATIVE: CASE EVENT DATE: 2014
